FAERS Safety Report 11771962 (Version 1)
Quarter: 2015Q4

REPORT INFORMATION
  Report Type: Spontaneous
  Country: US (occurrence: None)
  Receive Date: 20151123
  Receipt Date: 20151123
  Transmission Date: 20160304
  Serious: Yes (Life-Threatening, Hospitalization, Disabling)
  Sender: FDA-Public Use
  Company Number: None

PATIENT
  Age: 59 Year
  Sex: Male
  Weight: 68.5 kg

DRUGS (8)
  1. MULTAQ [Suspect]
     Active Substance: DRONEDARONE
     Indication: ATRIAL FIBRILLATION
     Dosage: ONE TO THREE TIMES A DAY 3 TIME DAILY BY MOUTH ??? ZAMANIAN BAHRAM
     Route: 048
     Dates: start: 2010, end: 201509
  2. PHENYTOIN. [Concomitant]
     Active Substance: PHENYTOIN
  3. RENAGEL [Concomitant]
     Active Substance: SEVELAMER HYDROCHLORIDE
  4. PLAVIX [Concomitant]
     Active Substance: CLOPIDOGREL BISULFATE
  5. ZANTAC [Concomitant]
     Active Substance: RANITIDINE HYDROCHLORIDE
  6. OCO [Concomitant]
  7. DILANTIN [Concomitant]
     Active Substance: PHENYTOIN
  8. VITAMIN D [Concomitant]
     Active Substance: CHOLECALCIFEROL

REACTIONS (4)
  - Seizure [None]
  - Somnolence [None]
  - Tachycardia [None]
  - Heart rate decreased [None]

NARRATIVE: CASE EVENT DATE: 2010
